FAERS Safety Report 8444956-9 (Version None)
Quarter: 2012Q2

REPORT INFORMATION
  Report Type: 
  Country: None (occurrence: None)
  Receive Date: 20120618
  Receipt Date: 20120608
  Transmission Date: 20120825
  Serious: Yes (Other)
  Sender: FDA-Public Use
  Company Number: US-ELI_LILLY_AND_COMPANY-US201203005737

PATIENT
  Sex: Female
  Weight: 95 kg

DRUGS (1)
  1. EVISTA [Suspect]
     Dosage: UNK, QD
     Route: 048
     Dates: start: 19910101, end: 20010101

REACTIONS (2)
  - BREAST CANCER IN SITU [None]
  - MUSCLE SPASMS [None]
